FAERS Safety Report 14606583 (Version 2)
Quarter: 2018Q2

REPORT INFORMATION
  Report Type: Spontaneous
  Country: US (occurrence: US)
  Receive Date: 20180307
  Receipt Date: 20180413
  Transmission Date: 20180711
  Serious: No
  Sender: FDA-Public Use
  Company Number: US-ASTRAZENECA-2018SE16725

PATIENT
  Age: 860 Month
  Sex: Female
  Weight: 61.2 kg

DRUGS (6)
  1. PULMICORT FLEXHALER [Suspect]
     Active Substance: BUDESONIDE
     Indication: PULMONARY FUNCTION TEST DECREASED
     Route: 055
  2. PULMICORT FLEXHALER [Suspect]
     Active Substance: BUDESONIDE
     Indication: CHRONIC OBSTRUCTIVE PULMONARY DISEASE
     Dosage: 90 MCG, 1 OR 2 INHALATIONS, DAILY, AS REQUIRED
     Route: 055
     Dates: start: 201801
  3. PULMICORT FLEXHALER [Suspect]
     Active Substance: BUDESONIDE
     Indication: PULMONARY FUNCTION TEST DECREASED
     Dosage: 90 MCG, 1 OR 2 INHALATIONS, DAILY, AS REQUIRED
     Route: 055
     Dates: start: 201801
  4. COMBIVENT [Concomitant]
     Active Substance: ALBUTEROL SULFATE\IPRATROPIUM BROMIDE
     Indication: CHRONIC OBSTRUCTIVE PULMONARY DISEASE
     Route: 065
  5. PULMICORT FLEXHALER [Suspect]
     Active Substance: BUDESONIDE
     Indication: CHRONIC OBSTRUCTIVE PULMONARY DISEASE
     Route: 055
  6. IPRATROPIUM BROMIDE. [Concomitant]
     Active Substance: IPRATROPIUM BROMIDE
     Indication: CHRONIC OBSTRUCTIVE PULMONARY DISEASE
     Route: 055

REACTIONS (9)
  - Off label use [Unknown]
  - Product use issue [Unknown]
  - Product use in unapproved indication [Unknown]
  - Intentional product misuse [Unknown]
  - Device issue [Unknown]
  - Medication error [Unknown]
  - Amnesia [Unknown]
  - Drug ineffective [Unknown]
  - Device failure [Unknown]

NARRATIVE: CASE EVENT DATE: 201801
